FAERS Safety Report 12654867 (Version 1)
Quarter: 2016Q3

REPORT INFORMATION
  Report Type: Spontaneous
  Country: BR (occurrence: BR)
  Receive Date: 20160816
  Receipt Date: 20160816
  Transmission Date: 20161109
  Serious: Yes (Other)
  Sender: FDA-Public Use
  Company Number: BR-PFIZER INC-2016381424

PATIENT
  Sex: Female

DRUGS (1)
  1. DEPO-PROVERA [Suspect]
     Active Substance: MEDROXYPROGESTERONE ACETATE
     Dosage: 150 MG, UNK

REACTIONS (6)
  - Formication [Unknown]
  - Diplopia [Recovering/Resolving]
  - Menorrhagia [Not Recovered/Not Resolved]
  - Migraine [Unknown]
  - Visual impairment [Recovering/Resolving]
  - Visual acuity reduced [Recovering/Resolving]
